FAERS Safety Report 5910878-8 (Version None)
Quarter: 2008Q4

REPORT INFORMATION
  Report Type: 
  Country: None (occurrence: None)
  Receive Date: 20081007
  Receipt Date: 20080612
  Transmission Date: 20090506
  Serious: No
  Sender: FDA-Public Use
  Company Number: US-ASTRAZENECA-2008UW11842

PATIENT
  Age: 68 Year
  Sex: Female

DRUGS (9)
  1. ARIMIDEX [Suspect]
     Route: 048
     Dates: start: 20050101
  2. CALCIUM [Concomitant]
  3. FOSAMAX [Concomitant]
  4. CARTIA XT [Concomitant]
  5. VYTORIN [Concomitant]
  6. PRILOSEC [Concomitant]
  7. MAGNESIUM SULFATE [Concomitant]
  8. OXIDE [Concomitant]
  9. ASPIRIN [Concomitant]

REACTIONS (1)
  - SENSITIVITY OF TEETH [None]
